FAERS Safety Report 6349488-X (Version None)
Quarter: 2009Q3

REPORT INFORMATION
  Report Type: 
  Country: None (occurrence: None)
  Receive Date: 20090911
  Receipt Date: 20090831
  Transmission Date: 20100115
  Serious: Yes (Other)
  Sender: FDA-Public Use
  Company Number: CH-PFIZER INC-2009243354

PATIENT

DRUGS (4)
  1. LYRICA [Suspect]
     Dosage: 150 MG, 3X/DAY
     Route: 048
     Dates: start: 20090523
  2. CIPRALEX [Concomitant]
     Dosage: 40 MG, 1X/DAY
     Dates: start: 20080115
  3. REMERON [Concomitant]
     Dosage: 15 MG, 1X/DAY
     Dates: start: 20071128
  4. CLARITIN [Concomitant]
     Dosage: 10 MG, 1X/DAY

REACTIONS (3)
  - FOOD CRAVING [None]
  - OSTEOPENIA [None]
  - WEIGHT INCREASED [None]
